FAERS Safety Report 6250110-1 (Version None)
Quarter: 2009Q2

REPORT INFORMATION
  Report Type: 
  Country: None (occurrence: None)
  Receive Date: 20090626
  Receipt Date: 20090616
  Transmission Date: 20091009
  Serious: Yes (Other)
  Sender: FDA-Public Use
  Company Number: 8047921

PATIENT
  Sex: Female
  Weight: 127 kg

DRUGS (9)
  1. KEPPRA [Suspect]
     Indication: CONVULSION
     Dosage: 250 MG /D PO
     Route: 048
     Dates: start: 20080901, end: 20080901
  2. KEPPRA [Suspect]
     Indication: CONVULSION
     Dosage: 250 MG 2/D PO
     Route: 048
     Dates: start: 20080901, end: 20080901
  3. KEPPRA [Suspect]
     Indication: CONVULSION
     Dosage: 500 MG /D PO
     Route: 048
     Dates: start: 20080901, end: 20080901
  4. KEPPRA [Suspect]
     Indication: CONVULSION
     Dosage: 500 MG 2/D PO
     Route: 048
     Dates: start: 20080901, end: 20080901
  5. KEPPRA [Suspect]
     Indication: CONVULSION
     Dosage: 500 MG 2/D PO
     Route: 048
     Dates: start: 20090301
  6. TEGRETOL [Concomitant]
  7. DILANTIN [Concomitant]
  8. CLONAZEPAM [Concomitant]
  9. DEPO-PROVERA [Concomitant]

REACTIONS (4)
  - CONFUSIONAL STATE [None]
  - DIPLEGIA [None]
  - DYSKINESIA [None]
  - GRAND MAL CONVULSION [None]
